FAERS Safety Report 16325625 (Version 1)
Quarter: 2019Q2

REPORT INFORMATION
  Report Type: Report from Study
  Country: DE (occurrence: DE)
  Receive Date: 20190517
  Receipt Date: 20190517
  Transmission Date: 20190711
  Serious: Yes (Other)
  Sender: FDA-Public Use
  Company Number: DE-ROCHE-2315235

PATIENT
  Age: 10 Year
  Sex: Female

DRUGS (3)
  1. TOCILIZUMAB. [Suspect]
     Active Substance: TOCILIZUMAB
     Indication: JUVENILE IDIOPATHIC ARTHRITIS
     Route: 065
     Dates: start: 20180823
  2. METHOTREXATE. [Suspect]
     Active Substance: METHOTREXATE
     Indication: JUVENILE IDIOPATHIC ARTHRITIS
     Route: 065
     Dates: start: 20180414
  3. FOLIC ACID. [Suspect]
     Active Substance: FOLIC ACID
     Indication: PROPHYLAXIS
     Route: 065
     Dates: start: 20180414

REACTIONS (1)
  - Pyoderma gangrenosum [Recovering/Resolving]

NARRATIVE: CASE EVENT DATE: 20181015
